FAERS Safety Report 24404705 (Version 1)
Quarter: 2024Q4

REPORT INFORMATION
  Report Type: Report from Study
  Country: US (occurrence: US)
  Receive Date: 20241007
  Receipt Date: 20241007
  Transmission Date: 20250114
  Serious: No
  Sender: ROCHE
  Company Number: US-ROCHE-3520886

PATIENT
  Age: 46 Year
  Sex: Male

DRUGS (6)
  1. GAZYVA [Suspect]
     Active Substance: OBINUTUZUMAB
     Indication: Chronic lymphocytic leukaemia
     Route: 065
  2. GAZYVA [Suspect]
     Active Substance: OBINUTUZUMAB
     Route: 065
  3. GAZYVA [Suspect]
     Active Substance: OBINUTUZUMAB
     Route: 065
  4. GAZYVA [Suspect]
     Active Substance: OBINUTUZUMAB
     Route: 065
  5. VENCLEXTA [Suspect]
     Active Substance: VENETOCLAX
     Indication: Chronic lymphocytic leukaemia
     Route: 065
  6. BENADRYL [Concomitant]
     Active Substance: DIPHENHYDRAMINE HYDROCHLORIDE

REACTIONS (6)
  - Feeling abnormal [Unknown]
  - Somnolence [Unknown]
  - Fatigue [Unknown]
  - Pain [Unknown]
  - Hypoaesthesia [Unknown]
  - Speech disorder [Unknown]
